FAERS Safety Report 18176614 (Version 2)
Quarter: 2020Q4

REPORT INFORMATION
  Report Type: Spontaneous
  Country: DE (occurrence: DE)
  Receive Date: 20200820
  Receipt Date: 20201104
  Transmission Date: 20210113
  Serious: Yes (Other)
  Sender: FDA-Public Use
  Company Number: NVSC2020DE228465

PATIENT
  Sex: Male

DRUGS (5)
  1. VITAMIN D [Concomitant]
     Active Substance: VITAMIN D NOS
     Indication: PRODUCT USED FOR UNKNOWN INDICATION
     Route: 065
  2. BIOTIN [Concomitant]
     Active Substance: BIOTIN
     Indication: PRODUCT USED FOR UNKNOWN INDICATION
     Route: 065
  3. GILENYA [Suspect]
     Active Substance: FINGOLIMOD HYDROCHLORIDE
     Indication: MULTIPLE SCLEROSIS
     Dosage: UNK
     Route: 065
     Dates: start: 2014, end: 2020
  4. GILENYA [Suspect]
     Active Substance: FINGOLIMOD HYDROCHLORIDE
     Dosage: 0.5 MG, QD
     Route: 048
     Dates: start: 201409, end: 20200623
  5. OCRELIZUMAB. [Concomitant]
     Active Substance: OCRELIZUMAB
     Indication: PRODUCT USED FOR UNKNOWN INDICATION
     Route: 065

REACTIONS (17)
  - Blood thyroid stimulating hormone decreased [Unknown]
  - Immunosuppression [Recovered/Resolved]
  - Rash [Unknown]
  - JC polyomavirus test positive [Unknown]
  - Diplopia [Unknown]
  - Muscular weakness [Unknown]
  - CSF test abnormal [Unknown]
  - Multiple sclerosis relapse [Unknown]
  - Blood immunoglobulin A decreased [Not Recovered/Not Resolved]
  - Cubital tunnel syndrome [Unknown]
  - Sensory disturbance [Unknown]
  - Arthralgia [Unknown]
  - Lymphocyte count decreased [Not Recovered/Not Resolved]
  - Central nervous system lesion [Unknown]
  - Blood immunoglobulin G decreased [Not Recovered/Not Resolved]
  - Migraine [Unknown]
  - Varicella virus test positive [Unknown]

NARRATIVE: CASE EVENT DATE: 201704
